FAERS Safety Report 5358145-8 (Version None)
Quarter: 2007Q2

REPORT INFORMATION
  Report Type: 
  Country: None (occurrence: None)
  Receive Date: 20070530
  Receipt Date: 20070104
  Transmission Date: 20071010
  Serious: Yes (Hospitalization)
  Sender: FDA-Public Use
  Company Number: US200605006006

PATIENT
  Age: 46 Year
  Sex: Male
  Weight: 127.9 kg

DRUGS (2)
  1. ZYPREXA [Suspect]
     Indication: SCHIZOPHRENIA
     Dosage: SEE IMAGE
     Dates: start: 19900101
  2. ZYPREXA [Suspect]
     Indication: SCHIZOPHRENIA
     Dosage: SEE IMAGE
     Dates: start: 20050101

REACTIONS (4)
  - DIABETES MELLITUS INSULIN-DEPENDENT [None]
  - PRESCRIBED OVERDOSE [None]
  - SCHIZOPHRENIA [None]
  - WEIGHT INCREASED [None]
